FAERS Safety Report 15643743 (Version 1)
Quarter: 2018Q4

REPORT INFORMATION
  Report Type: Spontaneous
  Country: US (occurrence: US)
  Receive Date: 20181121
  Receipt Date: 20181121
  Transmission Date: 20190205
  Serious: Yes (Hospitalization)
  Sender: FDA-Public Use
  Company Number: US-JNJFOC-20181124311

PATIENT
  Age: 42 Year
  Sex: Male

DRUGS (1)
  1. INVOKAMET [Suspect]
     Active Substance: CANAGLIFLOZIN\METFORMIN HYDROCHLORIDE
     Indication: TYPE 2 DIABETES MELLITUS
     Route: 048
     Dates: start: 20141122

REACTIONS (7)
  - Osteomyelitis [Recovering/Resolving]
  - Abscess [Recovering/Resolving]
  - Limb amputation [Unknown]
  - Diabetic foot [Recovering/Resolving]
  - Gangrene [Recovering/Resolving]
  - Cellulitis [Recovering/Resolving]
  - Localised infection [Recovering/Resolving]

NARRATIVE: CASE EVENT DATE: 20151124
